FAERS Safety Report 22230269 (Version 1)
Quarter: 2023Q2

REPORT INFORMATION
  Report Type: Report from Study
  Country: US (occurrence: US)
  Receive Date: 20230419
  Receipt Date: 20230419
  Transmission Date: 20230721
  Serious: Yes (Other)
  Sender: FDA-Public Use
  Company Number: US-JAZZ PHARMACEUTICALS-2023-US-008729

PATIENT
  Age: 46 Year
  Sex: Male

DRUGS (38)
  1. XYREM [Suspect]
     Active Substance: SODIUM OXYBATE
     Indication: Narcolepsy
     Dosage: UNK
  2. XYREM [Suspect]
     Active Substance: SODIUM OXYBATE
     Indication: Cataplexy
  3. XYREM [Suspect]
     Active Substance: SODIUM OXYBATE
     Indication: Somnolence
  4. CHLORTHALIDONE [Concomitant]
     Active Substance: CHLORTHALIDONE
     Dosage: 0000
     Dates: start: 20210301
  5. HYDRALAZINE [Concomitant]
     Active Substance: HYDRALAZINE HYDROCHLORIDE
     Dosage: 0000
     Dates: start: 20210301
  6. VITAMIN D3 [Concomitant]
     Active Substance: CHOLECALCIFEROL
     Dosage: 0000
     Dates: start: 20210120
  7. MAGNESIUM OXIDE [Concomitant]
     Active Substance: MAGNESIUM OXIDE
     Dosage: 0000
     Dates: start: 20220701
  8. TYLENOL [Concomitant]
     Active Substance: ACETAMINOPHEN
  9. ALBUTEROL [Concomitant]
     Active Substance: ALBUTEROL
  10. ZYLOPRIM [Concomitant]
     Active Substance: ALLOPURINOL
  11. ARMODAFINIL [Concomitant]
     Active Substance: ARMODAFINIL
  12. VITAMIN C [Concomitant]
     Active Substance: ASCORBIC ACID
  13. DIPROSONE [Concomitant]
     Active Substance: BETAMETHASONE DIPROPIONATE
  14. ZYRTEC [Concomitant]
     Active Substance: CETIRIZINE HYDROCHLORIDE
  15. THALITONE [Concomitant]
     Active Substance: CHLORTHALIDONE
  16. COLCHICINE [Concomitant]
     Active Substance: COLCHICINE
  17. CEFIXIME [Concomitant]
     Active Substance: CEFIXIME
  18. CYMBALTA [Concomitant]
     Active Substance: DULOXETINE HYDROCHLORIDE
  19. AIMOVIG [Concomitant]
     Active Substance: ERENUMAB-AOOE
  20. LUNESTA [Concomitant]
     Active Substance: ESZOPICLONE
  21. NEURONTIN [Concomitant]
     Active Substance: GABAPENTIN
  22. APRESOLINE HYDROCHLORIDE [Concomitant]
     Active Substance: HYDRALAZINE HYDROCHLORIDE
  23. ANUSOL-HC [HYDROCORTISONE ACETATE] [Concomitant]
  24. ATARAX [Concomitant]
     Active Substance: HYDROXYZINE HYDROCHLORIDE
  25. LEVSIN SL [Concomitant]
     Active Substance: HYOSCYAMINE SULFATE
  26. LIDODERM [Concomitant]
     Active Substance: LIDOCAINE
  27. COZAAR [Concomitant]
     Active Substance: LOSARTAN POTASSIUM
  28. METOPROLOL [Concomitant]
     Active Substance: METOPROLOL
  29. VITAMINS [Concomitant]
     Active Substance: VITAMINS
  30. PAMELOR [Concomitant]
     Active Substance: NORTRIPTYLINE HYDROCHLORIDE
  31. PANTOPRAZOLE [Concomitant]
     Active Substance: PANTOPRAZOLE
  32. MIRALAX [Concomitant]
     Active Substance: POLYETHYLENE GLYCOL 3350
  33. KLOR-CON [Concomitant]
     Active Substance: POTASSIUM CHLORIDE
  34. PRAVASTATIN [Concomitant]
     Active Substance: PRAVASTATIN
  35. RENVELA [Concomitant]
     Active Substance: SEVELAMER CARBONATE
  36. IMITREX [Concomitant]
     Active Substance: SUMATRIPTAN SUCCINATE
  37. TOPIRAMATE [Concomitant]
     Active Substance: TOPIRAMATE
  38. TRIAMCINOLONE ACETONIDE [Concomitant]
     Active Substance: TRIAMCINOLONE ACETONIDE

REACTIONS (2)
  - Cardiac disorder [Unknown]
  - Paraesthesia [Unknown]

NARRATIVE: CASE EVENT DATE: 20200710
